FAERS Safety Report 18618795 (Version 1)
Quarter: 2020Q4

REPORT INFORMATION
  Report Type: Spontaneous
  Country: DK (occurrence: DK)
  Receive Date: 20201215
  Receipt Date: 20201215
  Transmission Date: 20210114
  Serious: Yes (Hospitalization, Other)
  Sender: FDA-Public Use
  Company Number: DK-JNJFOC-20201225696

PATIENT
  Age: 73 Year
  Sex: Female

DRUGS (5)
  1. METOPROLOLSUCCINAT HEXAL [Concomitant]
     Active Substance: METOPROLOL SUCCINATE
     Indication: HEART RATE IRREGULAR
     Dosage: 200 MG, QD
     Route: 048
     Dates: start: 20190512
  2. KALIUMKLORID SANDOZ [Concomitant]
     Indication: MINERAL SUPPLEMENTATION
     Dosage: 3000 MG, QD
     Route: 048
     Dates: start: 20190508
  3. METFORMIN AUROBINDO [Concomitant]
     Active Substance: METFORMIN HYDROCHLORIDE
     Indication: TYPE 2 DIABETES MELLITUS
     Dosage: 2000 MG, QD
     Route: 048
     Dates: start: 20190512
  4. FUROSEMID ORIFARM [Concomitant]
     Active Substance: FUROSEMIDE
     Indication: DIURETIC THERAPY
     Dosage: 80 MG, QD
     Route: 048
     Dates: start: 20190824
  5. XARELTO [Suspect]
     Active Substance: RIVAROXABAN
     Indication: ATRIAL FIBRILLATION
     Dosage: 20 MG, QD
     Route: 048
     Dates: start: 2016, end: 20201116

REACTIONS (4)
  - Cerebral haemorrhage [Not Recovered/Not Resolved]
  - Hemiparesis [Unknown]
  - Dysarthria [Not Recovered/Not Resolved]
  - Aphasia [Not Recovered/Not Resolved]

NARRATIVE: CASE EVENT DATE: 20201116
